FAERS Safety Report 7952919-2 (Version None)
Quarter: 2011Q4

REPORT INFORMATION
  Report Type: 
  Country: None (occurrence: None)
  Receive Date: 20111201
  Receipt Date: 20111122
  Transmission Date: 20120403
  Serious: Yes (Hospitalization, Other)
  Sender: FDA-Public Use
  Company Number: US-ABBOTT-11P-163-0877073-00

PATIENT
  Sex: Female
  Weight: 71.732 kg

DRUGS (8)
  1. GLUCOPHAGE [Concomitant]
     Indication: TYPE 2 DIABETES MELLITUS
  2. SIMVASTATIN [Concomitant]
     Indication: BLOOD CHOLESTEROL INCREASED
  3. METOPROLOL [Concomitant]
     Indication: HEART RATE IRREGULAR
  4. CELEXA [Concomitant]
     Indication: DEPRESSION
  5. HUMIRA [Suspect]
     Indication: RHEUMATOID ARTHRITIS
  6. LISINOPRIL [Concomitant]
     Indication: HYPERTENSION
  7. GLIPIZIDE [Concomitant]
     Indication: TYPE 2 DIABETES MELLITUS
  8. XANAX [Concomitant]
     Indication: SLEEP DISORDER THERAPY

REACTIONS (7)
  - OVARIAN CYST [None]
  - ADENOMYOSIS [None]
  - STAPHYLOCOCCAL INFECTION [None]
  - POOR QUALITY SLEEP [None]
  - WOUND SECRETION [None]
  - ABDOMINAL PAIN [None]
  - RASH PRURITIC [None]
